FAERS Safety Report 12844758 (Version 2)
Quarter: 2017Q1

REPORT INFORMATION
  Report Type: Spontaneous
  Country: None (occurrence: PL)
  Receive Date: 20161013
  Receipt Date: 20170127
  Transmission Date: 20170428
  Serious: Yes (Hospitalization, Other)
  Sender: FDA-Public Use
  Company Number: PL-MEDAC PHARMA, INC.-1058316

PATIENT
  Age: 68 Year
  Sex: Female
  Weight: 79 kg

DRUGS (5)
  1. AMLODIPINE BESILATE [Concomitant]
     Active Substance: AMLODIPINE BESYLATE
     Route: 048
     Dates: start: 2000
  2. ETANERCEPT [Suspect]
     Active Substance: ETANERCEPT
     Route: 058
     Dates: start: 20141106, end: 20160602
  3. BISOPROLOL FUMARATE. [Concomitant]
     Active Substance: BISOPROLOL FUMARATE
     Route: 048
     Dates: start: 2000
  4. FOLIC ACID. [Concomitant]
     Active Substance: FOLIC ACID
     Route: 048
  5. METHOTREXATE. [Suspect]
     Active Substance: METHOTREXATE
     Indication: RHEUMATOID ARTHRITIS
     Route: 058
     Dates: end: 201601

REACTIONS (1)
  - Rectosigmoid cancer [Recovering/Resolving]

NARRATIVE: CASE EVENT DATE: 20160914
